FAERS Safety Report 16570689 (Version 1)
Quarter: 2019Q3

REPORT INFORMATION
  Report Type: Spontaneous
  Country: US (occurrence: US)
  Receive Date: 20190531
  Receipt Date: 20190531
  Transmission Date: 20191004
  Serious: Yes (Other)
  Sender: FDA-Public Use
  Company Number: None

PATIENT
  Age: 74 Year
  Sex: Female
  Weight: 56.25 kg

DRUGS (4)
  1. CURCUMIN [Concomitant]
     Active Substance: CURCUMIN
  2. DIOVAN [Concomitant]
     Active Substance: VALSARTAN
  3. TOPROL XL [Concomitant]
     Active Substance: METOPROLOL SUCCINATE
  4. CIPROFLOXACIN. [Suspect]
     Active Substance: CIPROFLOXACIN
     Indication: URINARY TRACT INFECTION
     Dosage: ?          QUANTITY:500 MG MILLIGRAM(S);?
     Route: 048
     Dates: start: 20190413, end: 20190419

REACTIONS (5)
  - Musculoskeletal pain [None]
  - Neck pain [None]
  - Myalgia [None]
  - Pain in extremity [None]
  - Muscular weakness [None]

NARRATIVE: CASE EVENT DATE: 20190413
